FAERS Safety Report 5495537-0 (Version None)
Quarter: 2007Q4

REPORT INFORMATION
  Report Type: 
  Country: None (occurrence: None)
  Receive Date: 20071015
  Receipt Date: 20070511
  Transmission Date: 20080405
  Serious: Yes (Hospitalization)
  Sender: FDA-Public Use
  Company Number: S07-USA-02047-01

PATIENT
  Age: 60 Year
  Sex: Male

DRUGS (11)
  1. LEXAPRO [Suspect]
     Indication: ANXIETY
     Dosage: 10 MG QD PO
     Route: 048
     Dates: start: 20070509, end: 20070511
  2. LEXAPRO [Suspect]
     Indication: DEPRESSION
     Dosage: 10 MG QD PO
     Route: 048
     Dates: start: 20070509, end: 20070511
  3. CARDIZEM [Concomitant]
  4. LISINOPRIL [Concomitant]
  5. TRICOR [Concomitant]
  6. METFORMIN HCL [Concomitant]
  7. GLUCOTROL [Concomitant]
  8. CIALIS [Concomitant]
  9. LORTABS (ACETAMINOPHEN/HYDROCODONE) [Concomitant]
  10. NEXIUM [Concomitant]
  11. ASPIRIN [Concomitant]

REACTIONS (5)
  - ASTHENIA [None]
  - BURNING SENSATION [None]
  - FLUSHING [None]
  - HEADACHE [None]
  - NAUSEA [None]
